FAERS Safety Report 13663773 (Version 4)
Quarter: 2017Q4

REPORT INFORMATION
  Report Type: Spontaneous
  Country: US (occurrence: US)
  Receive Date: 20170619
  Receipt Date: 20171121
  Transmission Date: 20180320
  Serious: No
  Sender: FDA-Public Use
  Company Number: US-PFIZER INC-2017265684

PATIENT
  Age: 64 Year
  Sex: Female
  Weight: 83.9 kg

DRUGS (1)
  1. XELJANZ XR [Suspect]
     Active Substance: TOFACITINIB CITRATE
     Indication: RHEUMATOID ARTHRITIS
     Dosage: 11 MG, DAILY
     Route: 048
     Dates: start: 20161229

REACTIONS (3)
  - Drug ineffective [Unknown]
  - Oral herpes [Unknown]
  - Fatigue [Not Recovered/Not Resolved]
